FAERS Safety Report 5520757-6 (Version None)
Quarter: 2007Q4

REPORT INFORMATION
  Report Type: 
  Country: None (occurrence: None)
  Receive Date: 20071115
  Receipt Date: 20071115
  Transmission Date: 20080405
  Serious: Yes (Life-Threatening)
  Sender: FDA-Public Use
  Company Number: None

PATIENT
  Age: 36 Year
  Sex: Female
  Weight: 68.0396 kg

DRUGS (1)
  1. PROTOPIC [Suspect]
     Indication: ECZEMA
     Dosage: APPLY TO AFFECTED TWICE A DAY TOP; AS NEEDED
     Route: 061
     Dates: start: 20050101, end: 20070101

REACTIONS (2)
  - DIFFUSE LARGE B-CELL LYMPHOMA [None]
  - NON-HODGKIN'S LYMPHOMA [None]
